FAERS Safety Report 5454550-X (Version None)
Quarter: 2007Q3

REPORT INFORMATION
  Report Type: 
  Country: None (occurrence: None)
  Receive Date: 20070917
  Receipt Date: 20060831
  Transmission Date: 20080115
  Serious: Yes (Hospitalization)
  Sender: FDA-Public Use
  Company Number: US-ASTRAZENECA-2006UW17249

PATIENT
  Age: 58 Year
  Sex: Female

DRUGS (3)
  1. SEROQUEL [Suspect]
     Route: 048
  2. WELLBUTRIN [Concomitant]
  3. ZOLOFT [Concomitant]

REACTIONS (3)
  - ASTHENIA [None]
  - MALAISE [None]
  - SOMNOLENCE [None]
